FAERS Safety Report 8477148-8 (Version None)
Quarter: 2012Q2

REPORT INFORMATION
  Report Type: 
  Country: None (occurrence: None)
  Receive Date: 20120625
  Receipt Date: 20120625
  Transmission Date: 20120825
  Serious: Yes (Hospitalization)
  Sender: FDA-Public Use
  Company Number: None

PATIENT
  Sex: Male
  Weight: 62.2 kg

DRUGS (3)
  1. BEVACIZUMAB (RHUMAB VEGF) [Suspect]
     Dosage: 960 MG
  2. CARBOPLATIN [Suspect]
     Dosage: 432 MG
  3. TAXOL [Suspect]
     Dosage: 350 MG

REACTIONS (4)
  - ASTHENIA [None]
  - DECREASED APPETITE [None]
  - EPISTAXIS [None]
  - PYREXIA [None]
